FAERS Safety Report 8418611-5 (Version None)
Quarter: 2012Q2

REPORT INFORMATION
  Report Type: 
  Country: None (occurrence: None)
  Receive Date: 20120607
  Receipt Date: 20120530
  Transmission Date: 20120825
  Serious: Yes (Hospitalization, Other)
  Sender: FDA-Public Use
  Company Number: IT-JNJFOC-20100501732

PATIENT
  Age: 48 Year
  Sex: Male
  Weight: 78 kg

DRUGS (14)
  1. REMICADE [Suspect]
     Indication: COLITIS ULCERATIVE
     Route: 042
     Dates: start: 20080408
  2. REMICADE [Suspect]
     Route: 042
     Dates: start: 20080621
  3. ADALIMUMAB [Suspect]
     Route: 058
     Dates: start: 20090324
  4. ADALIMUMAB [Suspect]
     Indication: COLITIS ULCERATIVE
     Route: 058
     Dates: start: 20090716, end: 20090716
  5. ADALIMUMAB [Suspect]
     Route: 058
     Dates: start: 20090407
  6. ADALIMUMAB [Suspect]
     Route: 058
     Dates: start: 20090421
  7. ADALIMUMAB [Suspect]
     Route: 058
     Dates: start: 20090616, end: 20090616
  8. ADALIMUMAB [Suspect]
     Route: 058
     Dates: start: 20090407
  9. SALAZOPYRIN [Concomitant]
     Indication: COLITIS ULCERATIVE
     Route: 048
     Dates: start: 20080101
  10. ADALIMUMAB [Suspect]
     Route: 058
     Dates: start: 20090324
  11. ADALIMUMAB [Suspect]
     Route: 058
     Dates: start: 20090421
  12. ADALIMUMAB [Suspect]
     Indication: PSORIATIC ARTHROPATHY
     Route: 058
     Dates: start: 20090716, end: 20090716
  13. ADALIMUMAB [Suspect]
     Route: 058
     Dates: start: 20090616, end: 20090616
  14. PANTOPRAZOLE [Concomitant]
     Indication: GASTRITIS
     Route: 048
     Dates: start: 20080101

REACTIONS (2)
  - PSORIATIC ARTHROPATHY [None]
  - DERMATITIS BULLOUS [None]
